FAERS Safety Report 6620184-4 (Version None)
Quarter: 2010Q1

REPORT INFORMATION
  Report Type: 
  Country: None (occurrence: None)
  Receive Date: 20100308
  Receipt Date: 20100308
  Transmission Date: 20100710
  Serious: Yes (Life-Threatening)
  Sender: FDA-Public Use
  Company Number: None

PATIENT
  Sex: Male
  Weight: 63.9572 kg

DRUGS (1)
  1. LISINOPRIL [Suspect]
     Indication: BLOOD PRESSURE
     Dosage: 1 TABLET DAILY
     Dates: start: 20090520

REACTIONS (3)
  - FEELING ABNORMAL [None]
  - PRODUCT SUBSTITUTION ISSUE [None]
  - SYNCOPE [None]
